FAERS Safety Report 4993114-9 (Version None)
Quarter: 2006Q1

REPORT INFORMATION
  Report Type: 
  Country: None (occurrence: None)
  Receive Date: 20060313
  Receipt Date: 20051119
  Transmission Date: 20060701
  Serious: No
  Sender: FDA-Public Use
  Company Number: 2005-BP-21056BP

PATIENT
  Sex: Female

DRUGS (9)
  1. SPIRIVA [Suspect]
     Indication: CHRONIC OBSTRUCTIVE PULMONARY DISEASE
     Dosage: (18 MCG), IH
     Route: 055
  2. FLONASE [Suspect]
     Dosage: IH
     Route: 055
  3. DETROL LA [Suspect]
     Indication: NOCTURIA
     Dosage: 4 MG (4 MG), PO
     Route: 048
     Dates: start: 20051117
  4. FORADIL [Suspect]
     Indication: CHRONIC OBSTRUCTIVE PULMONARY DISEASE
     Dosage: IH
     Route: 055
  5. FOSAMAX [Concomitant]
  6. EVISTA [Concomitant]
  7. PLAVIX [Concomitant]
  8. ASPIRIN [Concomitant]
  9. RESTASIS (CICLOSPORIN) [Concomitant]

REACTIONS (4)
  - COUGH [None]
  - DRY MOUTH [None]
  - DYSPHONIA [None]
  - PHARYNGOLARYNGEAL PAIN [None]
